FAERS Safety Report 7803210-6 (Version None)
Quarter: 2011Q4

REPORT INFORMATION
  Report Type: 
  Country: None (occurrence: None)
  Receive Date: 20111007
  Receipt Date: 20100726
  Transmission Date: 20120403
  Serious: No
  Sender: FDA-Public Use
  Company Number: US-ABBOTT-10P-163-0651256-00

PATIENT
  Sex: Male
  Weight: 35.866 kg

DRUGS (3)
  1. KALETRA [Suspect]
     Indication: HIV INFECTION
  2. ALBUTEROL [Concomitant]
     Indication: ASTHMA
  3. COMBIVIR [Concomitant]
     Indication: HIV INFECTION

REACTIONS (5)
  - HALLUCINATION [None]
  - DRUG DISPENSING ERROR [None]
  - DIZZINESS [None]
  - WRONG DRUG ADMINISTERED [None]
  - PRODUCT TAMPERING [None]
